FAERS Safety Report 8936568 (Version 2)
Quarter: 2013Q1

REPORT INFORMATION
  Report Type: Spontaneous
  Country: US (occurrence: US)
  Receive Date: 20121130
  Receipt Date: 20130110
  Transmission Date: 20140127
  Serious: Yes (Other)
  Sender: FDA-Public Use
  Company Number: US-PFIZER INC-2012297869

PATIENT
  Sex: 0

DRUGS (1)
  1. PREMPRO [Suspect]
     Dosage: UNK

REACTIONS (1)
  - Breast cyst [Unknown]
